FAERS Safety Report 21422016 (Version 1)
Quarter: 2022Q4

REPORT INFORMATION
  Report Type: Spontaneous
  Country: US (occurrence: US)
  Receive Date: 20221007
  Receipt Date: 20221007
  Transmission Date: 20230113
  Serious: Yes (Death, Disabling, Other)
  Sender: FDA-Public Use
  Company Number: US-TEVA-337212USA

PATIENT
  Age: 84 Year
  Sex: Female

DRUGS (3)
  1. ALENDRONATE SODIUM [Suspect]
     Active Substance: ALENDRONATE SODIUM
     Indication: Osteoporosis
     Route: 065
     Dates: start: 200807, end: 201005
  2. ALENDRONATE SODIUM [Suspect]
     Active Substance: ALENDRONATE SODIUM
     Route: 065
     Dates: start: 201007, end: 201008
  3. FOSAMAX [Suspect]
     Active Substance: ALENDRONATE SODIUM
     Indication: Osteoporosis
     Route: 065
     Dates: start: 200012, end: 200802

REACTIONS (4)
  - Death [Fatal]
  - Femur fracture [Unknown]
  - Bone disorder [Unknown]
  - Low turnover osteopathy [Unknown]

NARRATIVE: CASE EVENT DATE: 20100926
